FAERS Safety Report 18367924 (Version 2)
Quarter: 2020Q4

REPORT INFORMATION
  Report Type: Spontaneous
  Country: US (occurrence: US)
  Receive Date: 20201010
  Receipt Date: 20201010
  Transmission Date: 20210114
  Serious: No
  Sender: FDA-Public Use
  Company Number: US-JIANGSU HENGRUI MEDICINE CO., LTD.-2092638

PATIENT
  Age: 75 Year
  Sex: Female

DRUGS (6)
  1. R CEOP [RITUXIMAB] [Suspect]
     Active Substance: RITUXIMAB
     Dates: start: 20190913, end: 20200108
  2. CYCLOPHOSPHAMIDE FOR INJECTION USP, 500 MG, 1 G AND 2 G PER SINGLE-DOS [Suspect]
     Active Substance: CYCLOPHOSPHAMIDE
     Indication: DIFFUSE LARGE B-CELL LYMPHOMA REFRACTORY
     Dates: start: 20190913, end: 20200108
  3. R CEOP [ETOPOSIDE] [Suspect]
     Active Substance: ETOPOSIDE
  4. R CVP [RITUXIMAB] [Suspect]
     Active Substance: RITUXIMAB
  5. R CEOP [CYCLOPHOSPHAMIDE\PREDNISONE\VINCRISTINE] [Suspect]
     Active Substance: CYCLOPHOSPHAMIDE\PREDNISONE\VINCRISTINE
  6. R CVP [CYCLOPHOSPHAMIDE\PREDNISONE\VINCRISTINE] [Suspect]
     Active Substance: CYCLOPHOSPHAMIDE\PREDNISONE\VINCRISTINE

REACTIONS (1)
  - Cough [Unknown]
